FAERS Safety Report 6046442-2 (Version None)
Quarter: 2009Q1

REPORT INFORMATION
  Report Type: 
  Country: None (occurrence: None)
  Receive Date: 20090121
  Receipt Date: 20090121
  Transmission Date: 20090719
  Serious: Yes (Other)
  Sender: FDA-Public Use
  Company Number: None

PATIENT
  Age: 36 Year
  Sex: Female
  Weight: 73.4827 kg

DRUGS (1)
  1. NUVARING [Suspect]
     Indication: CONTRACEPTION
     Dosage: ONE RING FOR 3WKS/ MONTH INTRACERVICAL
     Route: 019
     Dates: start: 20070530, end: 20080824

REACTIONS (7)
  - BREAST TENDERNESS [None]
  - DYSPAREUNIA [None]
  - HYPOTHYROIDISM [None]
  - INSOMNIA [None]
  - RASH PRURITIC [None]
  - VAGINAL SWELLING [None]
  - WEIGHT INCREASED [None]
